FAERS Safety Report 6915233-X (Version None)
Quarter: 2010Q3

REPORT INFORMATION
  Report Type: 
  Country: None (occurrence: None)
  Receive Date: 20100804
  Receipt Date: 20100804
  Transmission Date: 20110219
  Serious: No
  Sender: FDA-Public Use
  Company Number: None

PATIENT
  Sex: Female

DRUGS (2)
  1. BUPROPION HCL [Suspect]
     Dosage: 150 DAILY PO
     Route: 048
     Dates: start: 20100101
  2. WELLBUTRIN XL [Suspect]

REACTIONS (1)
  - NO THERAPEUTIC RESPONSE [None]
